FAERS Safety Report 9610921 (Version 2)
Quarter: 2013Q4

REPORT INFORMATION
  Report Type: Spontaneous
  Country: DE (occurrence: DE)
  Receive Date: 20131009
  Receipt Date: 20131014
  Transmission Date: 20140711
  Serious: Yes (Hospitalization)
  Sender: FDA-Public Use
  Company Number: DE-PFIZER INC-2013282065

PATIENT
  Age: 74 Year
  Sex: Female
  Weight: 80 kg

DRUGS (7)
  1. IBUPROFEN [Suspect]
     Indication: MUSCULOSKELETAL PAIN
     Dosage: 600 MG, 3X/DAY
  2. RAMIPRIL [Interacting]
     Dosage: 5 MG, 2X/DAY
  3. TOREM [Interacting]
     Dosage: 10 MG, 1X/DAY
  4. METOPROLOL SUCCINATE [Interacting]
     Dosage: 95 MG 1 TABLET IN THE MORNING, HALF A TABLET IN THE EVENTING
  5. ALDACTONE [Interacting]
     Dosage: 25 MG, DAILY
  6. CLONIDINE [Interacting]
     Dosage: 250 UG, 1X/DAY
  7. MARCUMAR [Interacting]
     Dosage: ACCORDING TO INR

REACTIONS (5)
  - Overdose [Unknown]
  - Drug interaction [Unknown]
  - Blood pressure increased [Unknown]
  - Dizziness [Unknown]
  - Renal failure acute [Unknown]
